FAERS Safety Report 5259587-1 (Version None)
Quarter: 2007Q1

REPORT INFORMATION
  Report Type: 
  Country: None (occurrence: None)
  Receive Date: 20070307
  Receipt Date: 20070307
  Transmission Date: 20070707
  Serious: Yes (Hospitalization)
  Sender: FDA-Public Use
  Company Number: None

PATIENT
  Sex: Male
  Weight: 145.6 kg

DRUGS (2)
  1. TAXOTERE [Suspect]
     Indication: NON-SMALL CELL LUNG CANCER
     Dosage: 56MG WEEKLY X 7 IV
     Route: 042
     Dates: start: 20070220
  2. CARBOPLATIN [Suspect]
     Indication: NON-SMALL CELL LUNG CANCER
     Dosage: 312MG WEEKLY X7 IV
     Route: 042
     Dates: start: 20070220

REACTIONS (1)
  - PULMONARY EMBOLISM [None]
